FAERS Safety Report 20821088 (Version 2)
Quarter: 2022Q3

REPORT INFORMATION
  Report Type: Spontaneous
  Country: US (occurrence: US)
  Receive Date: 20220512
  Receipt Date: 20220728
  Transmission Date: 20221026
  Serious: No
  Sender: FDA-Public Use
  Company Number: US-PFIZER INC-202200458348

PATIENT
  Age: 49 Year
  Sex: Female

DRUGS (3)
  1. XELJANZ [Suspect]
     Active Substance: TOFACITINIB CITRATE
     Indication: Rheumatoid arthritis
     Dosage: 5 MG, 2X/DAY
     Route: 048
     Dates: start: 202202
  2. XELJANZ [Suspect]
     Active Substance: TOFACITINIB CITRATE
     Indication: Depression
  3. PREDNISONE [Concomitant]
     Active Substance: PREDNISONE
     Dosage: UNK

REACTIONS (8)
  - Drug ineffective [Recovering/Resolving]
  - Off label use [Unknown]
  - Blood pressure increased [Unknown]
  - Oral pain [Not Recovered/Not Resolved]
  - Nasopharyngitis [Unknown]
  - Sinusitis [Unknown]
  - Discouragement [Unknown]
  - Depressed mood [Unknown]

NARRATIVE: CASE EVENT DATE: 20220101
